FAERS Safety Report 16088123 (Version 2)
Quarter: 2019Q1

REPORT INFORMATION
  Report Type: Spontaneous
  Country: JP (occurrence: JP)
  Receive Date: 20190319
  Receipt Date: 20190319
  Transmission Date: 20190418
  Serious: Yes (Death, Other)
  Sender: FDA-Public Use
  Company Number: JP-IPSEN BIOPHARMACEUTICALS, INC.-2019-02789

PATIENT
  Age: 54 Year
  Sex: Male

DRUGS (9)
  1. IRINOTECAN LIPOSOME [Suspect]
     Active Substance: IRINOTECAN
     Indication: COLON CANCER STAGE II
  2. FLUOROURACIL. [Suspect]
     Active Substance: FLUOROURACIL
     Indication: COLON CANCER STAGE II
  3. IRINOTECAN LIPOSOME [Suspect]
     Active Substance: IRINOTECAN
     Indication: OFF LABEL USE
  4. FLUOROURACIL. [Suspect]
     Active Substance: FLUOROURACIL
     Indication: METASTASES TO LIVER
     Dosage: IRINOTECAN (CPT-11) WAS USED AT A HALF DOSE AND 5-FU AND LEUCOVORIN (LV) WERE USED AT THE NORMAL DOS
  5. FOLINIC ACID [Suspect]
     Active Substance: LEUCOVORIN
     Indication: METASTASES TO LIVER
  6. FOLINIC ACID [Suspect]
     Active Substance: LEUCOVORIN
     Indication: COLON CANCER STAGE II
     Dosage: IRINOTECAN (CPT-11) WAS USED AT A HALF DOSE AND 5-FU AND LEUCOVORIN (LV) WERE USED AT THE NORMAL DOS
  7. IRINOTECAN LIPOSOME [Suspect]
     Active Substance: IRINOTECAN
     Indication: METASTASES TO LIVER
     Dosage: IRINOTECAN (CPT-11) WAS USED AT A HALF DOSE AND 5-FU AND LEUCOVORIN (LV) WERE USED AT THE NORMAL DOS
     Route: 065
  8. PANITUMUMAB [Suspect]
     Active Substance: PANITUMUMAB
     Indication: COLON CANCER STAGE II
  9. PANITUMUMAB [Suspect]
     Active Substance: PANITUMUMAB
     Indication: METASTASES TO LIVER

REACTIONS (4)
  - Decreased appetite [Unknown]
  - Off label use [Unknown]
  - Diarrhoea [Unknown]
  - Disease progression [Fatal]
